FAERS Safety Report 11362962 (Version 1)
Quarter: 2015Q3

REPORT INFORMATION
  Report Type: Spontaneous
  Country: US (occurrence: US)
  Receive Date: 20150810
  Receipt Date: 20150810
  Transmission Date: 20151125
  Serious: No
  Sender: FDA-Public Use
  Company Number: US-AMEDRA PHARMACEUTICALS LLC-2014AMD00045

PATIENT
  Age: 50 Year
  Sex: Male
  Weight: 61.22 kg

DRUGS (6)
  1. VITAMINS [Concomitant]
     Active Substance: VITAMINS
  2. ALBENZA [Suspect]
     Active Substance: ALBENDAZOLE
     Indication: TRICHINIASIS
     Dosage: 400 MG, 2X/DAY
     Route: 048
     Dates: start: 201406, end: 20140713
  3. ALBENZA [Suspect]
     Active Substance: ALBENDAZOLE
     Dosage: 200 MG, 1X/DAY
     Route: 048
     Dates: start: 20140713
  4. COQ10 [Concomitant]
     Active Substance: UBIDECARENONE
  5. VITAMIN B6 [Concomitant]
     Active Substance: PYRIDOXINE HYDROCHLORIDE
  6. ANTIOXIDANTS [Concomitant]

REACTIONS (2)
  - Off label use [Not Recovered/Not Resolved]
  - Chest pain [Recovered/Resolved]

NARRATIVE: CASE EVENT DATE: 20140713
